FAERS Safety Report 5048757-3 (Version None)
Quarter: 2006Q3

REPORT INFORMATION
  Report Type: 
  Country: None (occurrence: None)
  Receive Date: 20060706
  Receipt Date: 20060626
  Transmission Date: 20061208
  Serious: Yes (Other)
  Sender: FDA-Public Use
  Company Number: 200612628GDS

PATIENT
  Age: 66 Year
  Sex: Female

DRUGS (3)
  1. ASPIRIN [Suspect]
     Indication: ATRIAL FIBRILLATION
  2. DIGOSIN (DIGOXIN [DIGOXIN]) [Suspect]
     Indication: ATRIAL FIBRILLATION
  3. ERYTHROPOEITIN [Concomitant]

REACTIONS (2)
  - APLASIA PURE RED CELL [None]
  - THERAPY NON-RESPONDER [None]
